FAERS Safety Report 19371232 (Version 1)
Quarter: 2021Q2

REPORT INFORMATION
  Report Type: Spontaneous
  Country: US (occurrence: US)
  Receive Date: 20210604
  Receipt Date: 20210604
  Transmission Date: 20210717
  Serious: No
  Sender: FDA-Public Use
  Company Number: US-EMD SERONO-7111417

PATIENT
  Age: 30 Year
  Sex: Male

DRUGS (2)
  1. REBIF [Suspect]
     Active Substance: INTERFERON BETA-1A
     Indication: PRODUCT USED FOR UNKNOWN INDICATION
     Route: 058
     Dates: start: 20120103, end: 20210224
  2. PRISTIQ EXTENDED?RELEASE [Suspect]
     Active Substance: DESVENLAFAXINE SUCCINATE
     Indication: ANXIETY
     Dates: start: 2012

REACTIONS (9)
  - Anxiety [Unknown]
  - Paraesthesia [Unknown]
  - Insomnia [Not Recovered/Not Resolved]
  - Rash [Recovering/Resolving]
  - Abdominal discomfort [Unknown]
  - Injection site erythema [Unknown]
  - Skin reaction [Unknown]
  - Pruritus [Unknown]
  - Muscle spasms [Not Recovered/Not Resolved]

NARRATIVE: CASE EVENT DATE: 2012
